FAERS Safety Report 4856775-0 (Version None)
Quarter: 2005Q4

REPORT INFORMATION
  Report Type: 
  Country: None (occurrence: None)
  Receive Date: 20051219
  Receipt Date: 20050121
  Transmission Date: 20060501
  Serious: No
  Sender: FDA-Public Use
  Company Number: US-GLAXOSMITHKLINE-A0541690A

PATIENT
  Sex: Female

DRUGS (1)
  1. NICODERM CQ [Suspect]

REACTIONS (1)
  - NERVOUSNESS [None]
